FAERS Safety Report 8552777-1 (Version None)
Quarter: 2012Q3

REPORT INFORMATION
  Report Type: 
  Country: None (occurrence: None)
  Receive Date: 20120731
  Receipt Date: 20120725
  Transmission Date: 20120928
  Serious: Yes (Other)
  Sender: FDA-Public Use
  Company Number: PHHY2012JP064559

PATIENT
  Sex: Female
  Weight: 55 kg

DRUGS (7)
  1. DIGOXIN [Concomitant]
     Dosage: UNK
     Dates: end: 20120501
  2. SANDOSTATIN [Concomitant]
     Indication: PANCREATIC NEUROENDOCRINE TUMOUR
     Dosage: UNK
     Route: 058
     Dates: start: 20110226, end: 20110309
  3. AFINITOR [Suspect]
     Indication: PANCREATIC NEUROENDOCRINE TUMOUR
     Dosage: 10 MG, DAILY IN TWO DIVIDED DOSES
     Route: 048
     Dates: start: 20111228, end: 20120402
  4. AFINITOR [Suspect]
     Dosage: 5 MG, DAILY
     Route: 048
     Dates: start: 20120403
  5. VERAPAMIL HCL [Concomitant]
     Dosage: UNK
     Dates: end: 20120501
  6. ADENOSINE [Concomitant]
     Dosage: 10 MG, UNK
     Dates: end: 20120501
  7. SANDOSTATIN LAR [Concomitant]
     Indication: PANCREATIC NEUROENDOCRINE TUMOUR
     Dosage: UNK
     Route: 030
     Dates: start: 20110310, end: 20111222

REACTIONS (3)
  - SUPRAVENTRICULAR TACHYCARDIA [None]
  - INTERSTITIAL LUNG DISEASE [None]
  - PALPITATIONS [None]
